FAERS Safety Report 23430419 (Version 1)
Quarter: 2024Q1

REPORT INFORMATION
  Report Type: Spontaneous
  Country: JP (occurrence: JP)
  Receive Date: 20240123
  Receipt Date: 20240123
  Transmission Date: 20240410
  Serious: Yes (Death, Life-Threatening, Hospitalization, Other)
  Sender: FDA-Public Use
  Company Number: JP-TAKEDA-2024TJP000630

PATIENT
  Age: 71 Year
  Sex: Male

DRUGS (2)
  1. LEUPLIN [Suspect]
     Active Substance: LEUPROLIDE ACETATE
     Indication: Prostate cancer
     Dosage: LEUPLIN PRO FOR INJECTION KIT 22.5 MG
     Route: 065
  2. BICALUTAMIDE [Suspect]
     Active Substance: BICALUTAMIDE
     Indication: Prostate cancer
     Dosage: UNK
     Route: 065

REACTIONS (7)
  - Multiple organ dysfunction syndrome [Fatal]
  - Coronary artery restenosis [Unknown]
  - Acute myocardial infarction [Unknown]
  - Infection [Unknown]
  - Cardiac failure [Unknown]
  - Ventricular fibrillation [Unknown]
  - Mitral valve incompetence [Unknown]
